FAERS Safety Report 8958818 (Version 1)
Quarter: 2012Q4

REPORT INFORMATION
  Report Type: 
  Country: US (occurrence: US)
  Receive Date: 20121212
  Receipt Date: 20121212
  Transmission Date: 20130627
  Serious: Yes (Death, Other)
  Sender: FDA-Public Use
  Company Number: PHEH2012US024423

PATIENT
  Sex: Male
  Weight: 79 kg

DRUGS (1)
  1. AFINITOR [Suspect]
     Indication: DISEASE PROGRESSION
     Dosage: UNK
     Dates: start: 201208

REACTIONS (7)
  - Death [Fatal]
  - General physical health deterioration [Unknown]
  - Pain [Unknown]
  - Decreased appetite [Unknown]
  - Weight decreased [Unknown]
  - Mucosal inflammation [Unknown]
  - Dysphagia [Unknown]
